FAERS Safety Report 11097636 (Version 12)
Quarter: 2016Q3

REPORT INFORMATION
  Report Type: Spontaneous
  Country: JP (occurrence: JP)
  Receive Date: 20150507
  Receipt Date: 20160728
  Transmission Date: 20161109
  Serious: Yes (Hospitalization)
  Sender: FDA-Public Use
  Company Number: JP-009507513-1504JPN002086

PATIENT
  Age: 57 Year
  Sex: Male
  Weight: 70 kg

DRUGS (7)
  1. EPIVIR [Suspect]
     Active Substance: LAMIVUDINE
     Dosage: UNK
     Route: 048
     Dates: start: 20031205, end: 2012
  2. CRIXIVAN [Suspect]
     Active Substance: INDINAVIR SULFATE
     Indication: ACQUIRED IMMUNODEFICIENCY SYNDROME
     Dosage: 800 MG, TID
     Route: 048
     Dates: start: 200005, end: 20031117
  3. STOCRIN TABLETS 200MG [Suspect]
     Active Substance: EFAVIRENZ
     Indication: ACQUIRED IMMUNODEFICIENCY SYNDROME
     Dosage: DAILY DOSAGE UNKNOWN
     Route: 048
     Dates: start: 20031205
  4. RETROVIR [Suspect]
     Active Substance: ZIDOVUDINE
     Dosage: UNK
     Route: 048
     Dates: start: 20031205, end: 2012
  5. RETROVIR [Suspect]
     Active Substance: ZIDOVUDINE
     Indication: ACQUIRED IMMUNODEFICIENCY SYNDROME
     Dosage: 300 MG, BID
     Route: 048
     Dates: start: 200005, end: 20031117
  6. EPIVIR [Suspect]
     Active Substance: LAMIVUDINE
     Indication: ACQUIRED IMMUNODEFICIENCY SYNDROME
     Dosage: 150 MG, BID
     Route: 048
     Dates: start: 200005, end: 20031117
  7. EPZICOM [Suspect]
     Active Substance: ABACAVIR SULFATE\LAMIVUDINE
     Indication: ACQUIRED IMMUNODEFICIENCY SYNDROME
     Dosage: DAILY DOSAGE UNKNOWN
     Route: 048
     Dates: start: 2012

REACTIONS (4)
  - Acute kidney injury [Recovered/Resolved]
  - Nephrolithiasis [Unknown]
  - Immune system disorder [Recovering/Resolving]
  - Fluid intake reduced [Unknown]

NARRATIVE: CASE EVENT DATE: 20031021
